FAERS Safety Report 7802643-1 (Version None)
Quarter: 2011Q4

REPORT INFORMATION
  Report Type: 
  Country: None (occurrence: None)
  Receive Date: 20111007
  Receipt Date: 20110930
  Transmission Date: 20120403
  Serious: Yes (Death, Hospitalization, Other)
  Sender: FDA-Public Use
  Company Number: PHEH2009US18000

PATIENT
  Sex: Female

DRUGS (52)
  1. COLACE [Concomitant]
  2. NAVELBINE [Concomitant]
  3. XELODA [Concomitant]
  4. SENOKOT [Concomitant]
  5. REGLAN [Concomitant]
     Route: 017
  6. VALIUM [Concomitant]
  7. MIRALAX [Concomitant]
     Dosage: 17 G, PRN
     Route: 048
  8. LASIX [Concomitant]
  9. PROTONIX [Concomitant]
  10. SYNTHROID [Concomitant]
  11. ROFECOXIB [Concomitant]
     Dosage: 2 DF, QD
     Route: 048
  12. PROTONIX [Concomitant]
     Dosage: 40 MG, BID
  13. AMBIEN [Concomitant]
  14. GEMZAR [Concomitant]
  15. ZITHROMAX [Concomitant]
  16. SALAGEN [Concomitant]
     Dosage: 5 MG, TID
     Route: 048
  17. COUMADIN [Concomitant]
  18. DIPHENHYDRAMINE HYDROCHLORIDE [Concomitant]
     Dosage: 25 MG, Q6H PRN
     Route: 048
  19. TIGAN [Concomitant]
  20. ARANESP [Concomitant]
  21. CARBOPLATIN [Concomitant]
  22. RELISTOR [Concomitant]
     Route: 058
  23. KEFLEX [Concomitant]
  24. POTASSIUM [Concomitant]
  25. FASLODEX [Concomitant]
  26. DROPERIDOL [Concomitant]
  27. ENOXAPARIN [Concomitant]
     Dosage: 80 MG, Q12H
     Route: 058
  28. DILAUDID [Concomitant]
  29. LAMICTAL [Concomitant]
     Dosage: 3 DF, BID
     Route: 048
  30. ZOFRAN [Concomitant]
     Dosage: 4 MG, QD
     Route: 048
  31. ZOMETA [Suspect]
     Indication: BREAST CANCER
     Dates: start: 20050801, end: 20060601
  32. PROVIGIL [Concomitant]
  33. TAXOTERE [Concomitant]
  34. PERCOCET [Concomitant]
  35. METHOTREXATE [Concomitant]
  36. DURAGESIC-100 [Concomitant]
     Dosage: 1 DF, Q72H
     Route: 061
  37. CEPHALEXIN [Concomitant]
     Dosage: 500 MG, Q6H
     Route: 048
  38. COMPAZINE [Concomitant]
  39. NEURONTIN [Concomitant]
     Dosage: 100 MG, QHS
     Route: 048
  40. XANAX [Concomitant]
     Dosage: 1 DF, Q6H
     Route: 048
  41. HALDOL [Concomitant]
     Dosage: 0.5 MG, UNK
     Route: 048
  42. NEXIUM [Concomitant]
  43. TAMOXIFEN CITRATE [Concomitant]
  44. AVASTIN [Concomitant]
  45. FEMARA [Concomitant]
  46. LYRICA [Concomitant]
  47. AREDIA [Suspect]
     Route: 042
     Dates: start: 20040501, end: 20050601
  48. STOOL SOFTENER [Concomitant]
  49. VICODIN [Concomitant]
  50. NORMODYNE [Concomitant]
  51. TAXOL [Concomitant]
  52. ATIVAN [Concomitant]
     Dosage: 0.5 MG, Q4H, PRN
     Route: 048

REACTIONS (55)
  - EPISTAXIS [None]
  - DECREASED APPETITE [None]
  - PULMONARY EMBOLISM [None]
  - METASTASES TO CENTRAL NERVOUS SYSTEM [None]
  - BACK PAIN [None]
  - STOMATITIS [None]
  - VOMITING [None]
  - VARICELLA [None]
  - INSOMNIA [None]
  - OSTEONECROSIS OF JAW [None]
  - PAIN [None]
  - OESOPHAGITIS [None]
  - JOINT EFFUSION [None]
  - DRY MOUTH [None]
  - TEMPERATURE INTOLERANCE [None]
  - RADICULITIS BRACHIAL [None]
  - METABOLIC DISORDER [None]
  - COAGULOPATHY [None]
  - PATHOLOGICAL FRACTURE [None]
  - INFECTION [None]
  - CONSTIPATION [None]
  - DYSPNOEA [None]
  - CHEST PAIN [None]
  - ARTHRALGIA [None]
  - PLEURAL EFFUSION [None]
  - HYPOMAGNESAEMIA [None]
  - RADICULOPATHY [None]
  - RESPIRATORY FAILURE [None]
  - WHITE BLOOD CELL COUNT DECREASED [None]
  - ACETABULUM FRACTURE [None]
  - HERPES ZOSTER [None]
  - BONE PAIN [None]
  - SYNOVIAL CYST [None]
  - ABDOMINAL PAIN [None]
  - HYPERTENSION [None]
  - DEATH [None]
  - BURSITIS [None]
  - PRURITUS [None]
  - NAUSEA [None]
  - HYPOAESTHESIA [None]
  - DYSPHAGIA [None]
  - CONFUSIONAL STATE [None]
  - MUSCULOSKELETAL PAIN [None]
  - NEURITIS [None]
  - THROMBOCYTOPENIA [None]
  - HYPOKALAEMIA [None]
  - NEUROPATHY PERIPHERAL [None]
  - SPONDYLOLISTHESIS [None]
  - DEFORMITY [None]
  - ANAEMIA [None]
  - FATIGUE [None]
  - DYSPEPSIA [None]
  - POLYNEUROPATHY [None]
  - SPINAL OSTEOARTHRITIS [None]
  - CONVULSION [None]
